FAERS Safety Report 5020931-1 (Version None)
Quarter: 2006Q2

REPORT INFORMATION
  Report Type: 
  Country: None (occurrence: None)
  Receive Date: 20060608
  Receipt Date: 20060519
  Transmission Date: 20061013
  Serious: Yes (Hospitalization)
  Sender: FDA-Public Use
  Company Number: 2006CG00974

PATIENT
  Age: 52 Year
  Sex: Male

DRUGS (3)
  1. CRESTOR [Suspect]
     Indication: DYSLIPIDAEMIA
     Route: 048
     Dates: start: 20060401, end: 20060509
  2. AUGMENTIN '125' [Concomitant]
     Indication: ANIMAL BITE
     Dates: start: 20060401, end: 20060501
  3. TETRACYCLINE [Concomitant]
     Indication: ANIMAL BITE
     Dates: start: 20060401, end: 20060501

REACTIONS (1)
  - GAMMA-GLUTAMYLTRANSFERASE INCREASED [None]
